FAERS Safety Report 5143257-4 (Version None)
Quarter: 2006Q4

REPORT INFORMATION
  Report Type: 
  Country: None (occurrence: None)
  Receive Date: 20061030
  Receipt Date: 20061013
  Transmission Date: 20070319
  Serious: Yes (Hospitalization)
  Sender: FDA-Public Use
  Company Number: DSA_28756_2006

PATIENT
  Age: 73 Year
  Sex: Male
  Weight: 74 kg

DRUGS (10)
  1. RENIVACE [Suspect]
     Indication: HYPERTENSION
     Dosage: 2.5 MG BID PO
     Route: 048
     Dates: start: 20060726, end: 20060822
  2. FAMOTIDINE [Suspect]
     Indication: GASTRIC ULCER
     Dosage: 20 MG BID IV
     Route: 042
     Dates: start: 20060718, end: 20060724
  3. FAMOTIDINE [Suspect]
     Indication: GASTRIC ULCER
     Dosage: 20 MG BID PO
     Route: 048
     Dates: start: 20060726, end: 20060806
  4. GASTER D [Suspect]
     Indication: GASTRIC ULCER HAEMORRHAGE
     Dosage: 20 MG BID PO
     Route: 048
     Dates: start: 20060822, end: 20060907
  5. PAZUCROSS [Suspect]
     Indication: SEPSIS
     Dosage: 500 MG BID PA
     Route: 051
     Dates: start: 20060806, end: 20060814
  6. PANALDINE [Suspect]
     Indication: ANGINA PECTORIS
     Dosage: 100 MG BID PO
     Route: 048
     Dates: start: 20060725, end: 20060726
  7. ARTIST [Suspect]
     Indication: HYPERTENSION
     Dosage: 5 MG BID PO
     Route: 048
     Dates: start: 20060726, end: 20060823
  8. ASPIRIN [Suspect]
     Indication: ANGINA PECTORIS
     Dosage: 100 MG BID PO
     Route: 048
     Dates: start: 20060726, end: 20060806
  9. SIGMART [Suspect]
     Indication: MYOCARDIAL INFARCTION
     Dosage: 5 MG BID PO
     Route: 048
     Dates: start: 20060726, end: 20060823
  10. LANSOPRAZOLE [Suspect]
     Dosage: DF PO
     Route: 048
     Dates: start: 20060807, end: 20060821

REACTIONS (7)
  - ALANINE AMINOTRANSFERASE INCREASED [None]
  - ASPARTATE AMINOTRANSFERASE INCREASED [None]
  - BLOOD ALKALINE PHOSPHATASE INCREASED [None]
  - BLOOD LACTATE DEHYDROGENASE INCREASED [None]
  - GASTRIC ULCER HAEMORRHAGE [None]
  - HEPATIC INFILTRATION EOSINOPHILIC [None]
  - LIVER DISORDER [None]
